FAERS Safety Report 22078141 (Version 3)
Quarter: 2023Q2

REPORT INFORMATION
  Report Type: Report from Study
  Country: AR (occurrence: AR)
  Receive Date: 20230309
  Receipt Date: 20230503
  Transmission Date: 20230722
  Serious: Yes (Hospitalization, Other)
  Sender: FDA-Public Use
  Company Number: AR-002147023-NVSC2023AR030708

PATIENT
  Age: 50 Year
  Sex: Female

DRUGS (4)
  1. KISQALI [Suspect]
     Active Substance: RIBOCICLIB
     Indication: Breast cancer metastatic
     Dosage: 600 MG, QD
     Route: 048
     Dates: start: 20221229
  2. KISQALI [Suspect]
     Active Substance: RIBOCICLIB
     Dosage: 600 MG, QD
     Route: 048
     Dates: start: 20221229, end: 20230301
  3. FULVESTRANT [Suspect]
     Active Substance: FULVESTRANT
     Indication: Breast cancer metastatic
     Dosage: 250 MG, QMO
     Route: 058
     Dates: start: 20221229, end: 20230301
  4. FULVESTRANT [Suspect]
     Active Substance: FULVESTRANT
     Dosage: 500 MG, QMO
     Route: 058
     Dates: start: 20221229

REACTIONS (13)
  - Anaemia [Recovering/Resolving]
  - Fatigue [Unknown]
  - Bone cancer [Unknown]
  - Second primary malignancy [Unknown]
  - Bone marrow disorder [Unknown]
  - Speech disorder [Unknown]
  - Gait inability [Unknown]
  - Muscle atrophy [Unknown]
  - Weight decreased [Unknown]
  - Malaise [Unknown]
  - Sciatica [Unknown]
  - Application site discomfort [Unknown]
  - Arthralgia [Unknown]

NARRATIVE: CASE EVENT DATE: 20230101
